FAERS Safety Report 10415486 (Version 1)
Quarter: 2014Q3

REPORT INFORMATION
  Report Type: Spontaneous
  Country: CA (occurrence: None)
  Receive Date: 20140826
  Receipt Date: 20140826
  Transmission Date: 20150326
  Serious: Yes (Other)
  Sender: FDA-Public Use
  Company Number: 2014AP004097

PATIENT
  Age: 80 Year
  Sex: Female

DRUGS (3)
  1. RISEDRONATE (RISEDRONATE) TABLET, 35MG [Suspect]
     Active Substance: RISEDRONATE SODIUM
     Indication: OSTEOPOROSIS
     Route: 048
     Dates: start: 20140814
  2. TELMISARTAN. [Concomitant]
     Active Substance: TELMISARTAN
  3. CALCIUM + VITAMIN D /01483701/ (CALCIUM COLECALCIFEROL) [Concomitant]

REACTIONS (3)
  - Haematochezia [None]
  - Stress [None]
  - Nervousness [None]

NARRATIVE: CASE EVENT DATE: 20140815
